FAERS Safety Report 8463881-0 (Version None)
Quarter: 2012Q2

REPORT INFORMATION
  Report Type: 
  Country: None (occurrence: None)
  Receive Date: 20120625
  Receipt Date: 20120614
  Transmission Date: 20120825
  Serious: Yes (Other)
  Sender: FDA-Public Use
  Company Number: JP-PFIZER INC-2012146252

PATIENT
  Age: 82 Year
  Sex: Female

DRUGS (1)
  1. CELEBREX [Suspect]
     Dosage: 400 MG, DAILY
     Route: 048

REACTIONS (2)
  - RESTLESSNESS [None]
  - DEMENTIA [None]
